FAERS Safety Report 19520691 (Version 4)
Quarter: 2021Q3

REPORT INFORMATION
  Report Type: Report from Study
  Country: GB (occurrence: GB)
  Receive Date: 20210712
  Receipt Date: 20210914
  Transmission Date: 20211014
  Serious: Yes (Other)
  Sender: FDA-Public Use
  Company Number: GB-UCBSA-2021032198

PATIENT
  Age: 77 Year
  Sex: Female

DRUGS (4)
  1. PARACETAMOL [Concomitant]
     Active Substance: ACETAMINOPHEN
     Indication: PAIN
  2. PREDNISOLONE. [Concomitant]
     Active Substance: PREDNISOLONE
  3. CERTOLIZUMAB PEGOL [Suspect]
     Active Substance: CERTOLIZUMAB PEGOL
     Dosage: 200 MILLIGRAM, EV 2 WEEKS(QOW)
     Route: 058
     Dates: start: 202001
  4. CERTOLIZUMAB PEGOL [Suspect]
     Active Substance: CERTOLIZUMAB PEGOL
     Indication: RHEUMATOID ARTHRITIS
     Dosage: 400 MILLIGRAM, EV 2 WEEKS(QOW)
     Route: 058
     Dates: start: 20191122

REACTIONS (5)
  - Psoriasis [Recovering/Resolving]
  - Cellulitis [Recovering/Resolving]
  - Nasopharyngitis [Unknown]
  - Headache [Not Recovered/Not Resolved]
  - Erythema nodosum [Recovering/Resolving]

NARRATIVE: CASE EVENT DATE: 2021
